FAERS Safety Report 24867432 (Version 1)
Quarter: 2025Q1

REPORT INFORMATION
  Report Type: Spontaneous
  Country: US (occurrence: US)
  Receive Date: 20250121
  Receipt Date: 20250121
  Transmission Date: 20250409
  Serious: No
  Sender: NOVARTIS
  Company Number: US-002147023-NVSC2025US009882

PATIENT
  Sex: Male
  Weight: 75.3 kg

DRUGS (1)
  1. SCEMBLIX [Suspect]
     Active Substance: ASCIMINIB HYDROCHLORIDE
     Indication: Polycythaemia vera
     Dosage: 40 MG, QD
     Route: 048

REACTIONS (1)
  - Nasopharyngitis [Unknown]
